FAERS Safety Report 12979593 (Version 3)
Quarter: 2017Q1

REPORT INFORMATION
  Report Type: Spontaneous
  Country: HR (occurrence: HR)
  Receive Date: 20161128
  Receipt Date: 20170111
  Transmission Date: 20170428
  Serious: Yes (Other)
  Sender: FDA-Public Use
  Company Number: HR-TOLMAR, INC.-2016HR012421

PATIENT
  Age: 86 Year
  Sex: Male

DRUGS (4)
  1. VITAMIN D3 [Concomitant]
     Active Substance: CHOLECALCIFEROL
  2. BRUFEN                             /00109201/ [Concomitant]
     Active Substance: IBUPROFEN
  3. CALCIUM [Concomitant]
     Active Substance: CALCIUM
     Dosage: 500 MG, UNK
  4. ELIGARD [Suspect]
     Active Substance: LEUPROLIDE ACETATE
     Indication: PROSTATE CANCER METASTATIC
     Dosage: 45 MG, EVERY SIX MONTHS
     Route: 058
     Dates: start: 20160916, end: 20160916

REACTIONS (2)
  - Prostate cancer [Unknown]
  - Drug ineffective [Unknown]

NARRATIVE: CASE EVENT DATE: 20161110
